FAERS Safety Report 4678256-X (Version None)
Quarter: 2005Q2

REPORT INFORMATION
  Report Type: 
  Country: None (occurrence: None)
  Receive Date: 20050601
  Receipt Date: 20050502
  Transmission Date: 20051028
  Serious: Yes (Life-Threatening)
  Sender: FDA-Public Use
  Company Number: 200511515FR

PATIENT
  Age: 48 Year
  Sex: Female
  Weight: 60 kg

DRUGS (14)
  1. IMOVANE [Suspect]
     Route: 048
     Dates: start: 20050412, end: 20050416
  2. LOVENOX [Suspect]
     Route: 058
  3. GENTAMICIN [Suspect]
     Indication: SEPTIC SHOCK
     Route: 042
     Dates: start: 20050418, end: 20050421
  4. VANCOMYCIN [Suspect]
     Indication: SEPTIC SHOCK
     Route: 042
     Dates: start: 20050418, end: 20050421
  5. ALPRAZOLAM [Suspect]
     Route: 048
     Dates: start: 20050402, end: 20050413
  6. CORDARONE [Suspect]
     Route: 048
     Dates: start: 20050312, end: 20050416
  7. ERYTHROMYCIN [Concomitant]
     Indication: SEPTIC SHOCK
  8. AMOXICILLIN [Concomitant]
     Indication: SEPTIC SHOCK
  9. AMIKACIN [Concomitant]
     Indication: SEPTIC SHOCK
  10. IMIPENEME [Concomitant]
     Indication: SEPTIC SHOCK
  11. SKENAN [Concomitant]
  12. ACTISKENAN [Concomitant]
  13. PARACETAMOL [Concomitant]
  14. ATARAX [Concomitant]

REACTIONS (12)
  - CONDITION AGGRAVATED [None]
  - ERYTHEMA MULTIFORME [None]
  - FINGER AMPUTATION [None]
  - GAMMA-GLUTAMYLTRANSFERASE INCREASED [None]
  - HAEMODIALYSIS [None]
  - HAND AMPUTATION [None]
  - HEPATIC ENZYME INCREASED [None]
  - LEG AMPUTATION [None]
  - RENAL FAILURE [None]
  - RESPIRATORY DISTRESS [None]
  - TOE AMPUTATION [None]
  - TOXIC EPIDERMAL NECROLYSIS [None]
